FAERS Safety Report 13418678 (Version 1)
Quarter: 2017Q2

REPORT INFORMATION
  Report Type: Spontaneous
  Country: GB (occurrence: GB)
  Receive Date: 20170406
  Receipt Date: 20170406
  Transmission Date: 20170830
  Serious: Yes (Other)
  Sender: FDA-Public Use
  Company Number: GB-INTERNATIONAL MEDICATION SYSTEMS, LIMITED-1065124

PATIENT
  Age: 52 Year
  Sex: Male
  Weight: 84.5 kg

DRUGS (9)
  1. SODIUM BICARBONATE. [Suspect]
     Active Substance: SODIUM BICARBONATE
     Indication: HAEMODIALYSIS
     Route: 010
  2. COLECALCIFEROL [Concomitant]
     Active Substance: CHOLECALCIFEROL
  3. BISOPROLOL [Concomitant]
     Active Substance: BISOPROLOL
  4. SEVELAMER CARBONATE. [Concomitant]
     Active Substance: SEVELAMER CARBONATE
  5. SODIUM CHLORIDE. [Suspect]
     Active Substance: SODIUM CHLORIDE
     Route: 010
  6. NEORECORMON [Concomitant]
     Active Substance: ERYTHROPOIETIN
  7. RENAVIT [Concomitant]
  8. ALFACALCIDOL [Concomitant]
     Active Substance: ALFACALCIDOL
  9. CINACALCET [Concomitant]
     Active Substance: CINACALCET

REACTIONS (3)
  - Normochromic normocytic anaemia [Unknown]
  - Haemolysis [Unknown]
  - End stage renal disease [Unknown]
